FAERS Safety Report 8396083-7 (Version None)
Quarter: 2012Q2

REPORT INFORMATION
  Report Type: 
  Country: None (occurrence: None)
  Receive Date: 20120530
  Receipt Date: 20120522
  Transmission Date: 20120825
  Serious: Yes (Hospitalization)
  Sender: FDA-Public Use
  Company Number: UA-UCBSA-057931

PATIENT
  Sex: Male

DRUGS (7)
  1. MIRAPEX [Concomitant]
  2. PRONORAN [Concomitant]
     Indication: PARKINSON'S DISEASE
     Dosage: 2 TABLETS
     Dates: end: 20120521
  3. NEUPRO [Suspect]
     Indication: PARKINSON'S DISEASE
     Route: 062
     Dates: start: 20120522, end: 20120522
  4. MIRAPEX [Concomitant]
     Indication: PARKINSON'S DISEASE
     Dosage: THREE TABLETS A DAY (0.75 MG)
  5. CATACHROME [Concomitant]
     Indication: RETINAL VEIN THROMBOSIS
     Dates: start: 20120501
  6. ENELBIN [Concomitant]
     Indication: RETINAL VEIN THROMBOSIS
     Dates: start: 20120501
  7. TRENTAL [Concomitant]
     Indication: RETINAL VEIN THROMBOSIS
     Dates: start: 20120501

REACTIONS (4)
  - SALIVARY HYPERSECRETION [None]
  - DRY MOUTH [None]
  - DYSPHONIA [None]
  - APHONIA [None]
